FAERS Safety Report 9312121 (Version 2)
Quarter: 2013Q2

REPORT INFORMATION
  Report Type: Spontaneous
  Country: JP (occurrence: JP)
  Receive Date: 20130528
  Receipt Date: 20130617
  Transmission Date: 20140414
  Serious: Yes (Hospitalization)
  Sender: FDA-Public Use
  Company Number: JP-UCBSA-085545

PATIENT
  Sex: Female

DRUGS (2)
  1. E KEPPRA [Suspect]
     Indication: EPILEPSY
     Dosage: UNKNOWN DOSE
     Route: 048
  2. EXCEGRAN [Concomitant]
     Route: 048

REACTIONS (5)
  - Investigation [Unknown]
  - Flushing [Recovering/Resolving]
  - Heart rate increased [Recovering/Resolving]
  - Eye movement disorder [Recovering/Resolving]
  - Dyskinesia [Recovering/Resolving]
